FAERS Safety Report 12803960 (Version 1)
Quarter: 2016Q4

REPORT INFORMATION
  Report Type: Spontaneous
  Country: US (occurrence: US)
  Receive Date: 20161001
  Receipt Date: 20161001
  Transmission Date: 20170207
  Serious: Yes (Hospitalization)
  Sender: FDA-Public Use
  Company Number: None

PATIENT
  Age: 5 Month
  Sex: Male
  Weight: 18 kg

DRUGS (1)
  1. BABY TEETHING (HYLAND HOMEOPATHIC) [Suspect]
     Active Substance: HOMEOPATHICS
     Indication: TEETHING
     Dosage: ?          QUANTITY:2 TABLET(S);?
     Route: 048

REACTIONS (7)
  - Respiratory distress [None]
  - Foaming at mouth [None]
  - Blood pressure increased [None]
  - Stress [None]
  - Crying [None]
  - Product use issue [None]
  - Eye movement disorder [None]

NARRATIVE: CASE EVENT DATE: 20100902
